FAERS Safety Report 7313208-2 (Version None)
Quarter: 2011Q1

REPORT INFORMATION
  Report Type: 
  Country: None (occurrence: None)
  Receive Date: 20110225
  Receipt Date: 20110215
  Transmission Date: 20110831
  Serious: Yes (Other)
  Sender: FDA-Public Use
  Company Number: US-ELI_LILLY_AND_COMPANY-US201011002968

PATIENT
  Sex: Female

DRUGS (10)
  1. LANTUS [Concomitant]
  2. LEVOTHYROXINE SODIUM [Concomitant]
  3. GLIPIZIDE [Concomitant]
  4. FORTEO [Suspect]
     Indication: OSTEOPOROSIS
     Dosage: 20 UG, DAILY (1/D)
     Route: 065
  5. LOVASTATIN [Concomitant]
  6. HYDROCHLOROTHIAZIDE [Concomitant]
  7. AGGRENOX [Concomitant]
  8. DIOVAN [Concomitant]
  9. AMLODIPINE [Concomitant]
  10. GABAPENTIN [Concomitant]

REACTIONS (11)
  - ARTHRALGIA [None]
  - HEADACHE [None]
  - FALL [None]
  - CONTUSION [None]
  - INFLUENZA [None]
  - CEREBROVASCULAR ACCIDENT [None]
  - BLOOD CALCIUM DECREASED [None]
  - PAIN [None]
  - COUGH [None]
  - NASOPHARYNGITIS [None]
  - VASCULAR OCCLUSION [None]
